FAERS Safety Report 10285092 (Version 1)
Quarter: 2014Q3

REPORT INFORMATION
  Report Type: Spontaneous
  Country: US (occurrence: None)
  Receive Date: 20140703
  Receipt Date: 20140703
  Transmission Date: 20150326
  Serious: Yes (Other)
  Sender: FDA-Public Use
  Company Number: None

PATIENT
  Age: 9 Year
  Sex: Male

DRUGS (2)
  1. AFINITOR [Suspect]
     Active Substance: EVEROLIMUS
     Indication: SPINAL CORD NEOPLASM
     Route: 048
     Dates: start: 20120328
  2. AFINITOR [Suspect]
     Active Substance: EVEROLIMUS
     Indication: BRAIN NEOPLASM
     Route: 048
     Dates: start: 20120328

REACTIONS (2)
  - Pneumonia [None]
  - Cough [None]

NARRATIVE: CASE EVENT DATE: 20140702
